FAERS Safety Report 15108835 (Version 1)
Quarter: 2018Q3

REPORT INFORMATION
  Report Type: Report from Study
  Country: IT (occurrence: IT)
  Receive Date: 20180705
  Receipt Date: 20180705
  Transmission Date: 20181010
  Serious: Yes (Other)
  Sender: FDA-Public Use
  Company Number: IT-TEVA-2018-IT-917982

PATIENT
  Age: 70 Year
  Sex: Female

DRUGS (12)
  1. CATAPRESAN TTS?1 2,5 MG CEROTTI TRANSDERMICI [Concomitant]
     Dates: start: 20180329
  2. ALDOMET 500 MG COMPRESSE RIVESTITE CON FILM [Concomitant]
     Dates: start: 20180329, end: 20180402
  3. MESTINON 60 MG COMPRESSE [Concomitant]
  4. TRAVATAN 40 MICROGRAMS/ML EYE DROPS, SOLUTION [Concomitant]
     Route: 065
  5. ROSUVASTATIN CALCIUM. [Concomitant]
     Active Substance: ROSUVASTATIN CALCIUM
  6. LEVOTHYROXINE SODIUM. [Concomitant]
     Active Substance: LEVOTHYROXINE SODIUM
  7. PREDNISONE. [Suspect]
     Active Substance: PREDNISONE
     Indication: AUTOIMMUNE DISORDER
     Route: 065
     Dates: start: 20120101, end: 20180406
  8. TRESIBA [Concomitant]
     Active Substance: INSULIN DEGLUDEC
     Dosage: 100UNITS/ML ? FORM STRENGTH
  9. PANTORC 20 MG COMPRESSE GASTRORESISTENTI [Concomitant]
     Active Substance: PANTOPRAZOLE SODIUM
  10. TACHIDOL 500 MG/30 MG COMPRESSE RIVESTITE CON FILM [Concomitant]
     Active Substance: ACETAMINOPHEN\CODEINE PHOSPHATE
  11. LEXOTAN 2,5 MG/ML GOCCE ORALI SOLUZIONE [Concomitant]
     Active Substance: BROMAZEPAM
  12. TRIATEC  5 MG COMPRESSE [Concomitant]
     Dates: start: 20180329

REACTIONS (1)
  - Cushing^s syndrome [Unknown]

NARRATIVE: CASE EVENT DATE: 20180401
